FAERS Safety Report 8377436-X (Version None)
Quarter: 2012Q2

REPORT INFORMATION
  Report Type: 
  Country: None (occurrence: None)
  Receive Date: 20120522
  Receipt Date: 20111123
  Transmission Date: 20120825
  Serious: No
  Sender: FDA-Public Use
  Company Number: US-ASTRAZENECA-2011SE71923

PATIENT
  Age: 16 Year
  Sex: Female
  Weight: 60.4 kg

DRUGS (5)
  1. PROMETHAZIE WITH CODEINE [Concomitant]
  2. HYDROXYZINE HYDROCHLORIDE [Concomitant]
  3. OMEPRAZOLE [Suspect]
     Route: 048
  4. ZYRTEC-D 12 HOUR [Concomitant]
  5. MUCINEX [Concomitant]

REACTIONS (6)
  - WHEEZING [None]
  - DYSPNOEA [None]
  - COUGH [None]
  - RHINITIS ALLERGIC [None]
  - GASTROOESOPHAGEAL REFLUX DISEASE [None]
  - SINUSITIS [None]
